FAERS Safety Report 18368706 (Version 1)
Quarter: 2020Q4

REPORT INFORMATION
  Report Type: Spontaneous
  Country: US (occurrence: US)
  Receive Date: 20201011
  Receipt Date: 20201011
  Transmission Date: 20210114
  Serious: No
  Sender: FDA-Public Use
  Company Number: US-ASTRAZENECA-2020SF27574

PATIENT
  Sex: Female
  Weight: 59 kg

DRUGS (1)
  1. BYDUREON [Suspect]
     Active Substance: EXENATIDE
     Dosage: UNKNOWN
     Route: 058

REACTIONS (7)
  - Weight decreased [Unknown]
  - Injection site mass [Unknown]
  - Dyspepsia [Unknown]
  - Nausea [Unknown]
  - Ageusia [Unknown]
  - Illness [Unknown]
  - Diarrhoea [Unknown]
